FAERS Safety Report 6298698-9 (Version None)
Quarter: 2009Q3

REPORT INFORMATION
  Report Type: 
  Country: None (occurrence: None)
  Receive Date: 20090806
  Receipt Date: 20070703
  Transmission Date: 20100115
  Serious: Yes (Other)
  Sender: FDA-Public Use
  Company Number: US-ASTRAZENECA-2006UW27729

PATIENT
  Age: 21944 Day
  Sex: Female
  Weight: 86.2 kg

DRUGS (13)
  1. SEROQUEL [Suspect]
     Indication: SCHIZOPHRENIA
     Dosage: 25-300 MG
     Route: 048
     Dates: start: 20040217
  2. SEROQUEL [Suspect]
     Indication: DEPRESSION
     Dosage: 25-300 MG
     Route: 048
     Dates: start: 20040217
  3. SEROQUEL [Suspect]
     Indication: SLEEP DISORDER
     Dosage: 25-300 MG
     Route: 048
     Dates: start: 20040217
  4. SEROQUEL [Suspect]
     Route: 048
  5. SEROQUEL [Suspect]
     Route: 048
  6. SEROQUEL [Suspect]
     Route: 048
  7. ZYPREXA [Concomitant]
  8. LASIX [Concomitant]
     Dates: start: 20030923
  9. HYDROCHLOROTHIAZIDE [Concomitant]
     Dates: start: 20021121
  10. NEURONTIN [Concomitant]
     Dosage: 300-1200 MG VARIABLE DAILY DOSE
     Dates: start: 20040304
  11. METFORMIN [Concomitant]
     Dates: start: 20060502
  12. LANTUS [Concomitant]
     Dosage: 20 UNITS - 40 UNITS
     Route: 058
     Dates: start: 20050613
  13. LISINOPRIL [Concomitant]
     Dates: start: 20060512

REACTIONS (4)
  - DIABETES MELLITUS [None]
  - DIABETIC KETOACIDOSIS [None]
  - DIABETIC NEUROPATHY [None]
  - NEUROPATHY PERIPHERAL [None]
